FAERS Safety Report 15546118 (Version 1)
Quarter: 2018Q4

REPORT INFORMATION
  Report Type: Spontaneous
  Country: US (occurrence: US)
  Receive Date: 20181024
  Receipt Date: 20181024
  Transmission Date: 20190205
  Serious: Yes (Other)
  Sender: FDA-Public Use
  Company Number: PHHY2018US126797

PATIENT
  Sex: Male

DRUGS (1)
  1. ITRACONAZOLE. [Suspect]
     Active Substance: ITRACONAZOLE
     Indication: BLASTOMYCOSIS
     Dosage: 200 MG, BID
     Route: 065

REACTIONS (3)
  - Blister [Recovered/Resolved]
  - Product use in unapproved indication [Unknown]
  - Haemorrhage [Recovered/Resolved]
